FAERS Safety Report 5082471-3 (Version None)
Quarter: 2006Q3

REPORT INFORMATION
  Report Type: 
  Country: None (occurrence: None)
  Receive Date: 20060817
  Receipt Date: 20060608
  Transmission Date: 20061208
  Serious: Yes (Other)
  Sender: FDA-Public Use
  Company Number: DEWYE702108JUN06

PATIENT
  Sex: Female
  Weight: 15 kg

DRUGS (3)
  1. ENBREL [Suspect]
     Indication: JUVENILE ARTHRITIS
     Route: 058
     Dates: start: 20050601, end: 20060601
  2. INDOMETHACIN [Suspect]
     Indication: JUVENILE ARTHRITIS
     Route: 048
     Dates: start: 20040601, end: 20060601
  3. AZATHIOPRINE [Concomitant]
     Indication: JUVENILE ARTHRITIS
     Route: 048
     Dates: start: 20050601

REACTIONS (1)
  - EPILEPSY [None]
